FAERS Safety Report 4752366-0 (Version None)
Quarter: 2005Q3

REPORT INFORMATION
  Report Type: 
  Country: None (occurrence: None)
  Receive Date: 20050824
  Receipt Date: 20050824
  Transmission Date: 20060218
  Serious: Yes (Other)
  Sender: FDA-Public Use
  Company Number: None

PATIENT
  Age: 62 Year
  Sex: Female

DRUGS (10)
  1. IRON DEXTRAN [Suspect]
     Indication: ANAEMIA
     Dosage: 1000 MG ONE TIME IV DRIP
     Route: 042
     Dates: start: 20050608, end: 20050608
  2. COUMADIN [Concomitant]
  3. CARTIA XT [Concomitant]
  4. LOPID [Concomitant]
  5. DYAZIDE [Concomitant]
  6. FOSAMAX [Concomitant]
  7. XANAX [Concomitant]
  8. GLUCOPHAGE [Concomitant]
  9. ALTACE [Concomitant]
  10. CALCIUM GLUCONATE [Concomitant]

REACTIONS (3)
  - BACK PAIN [None]
  - INFUSION RELATED REACTION [None]
  - RASH PRURITIC [None]
